FAERS Safety Report 9493851 (Version 2)
Quarter: 2013Q4

REPORT INFORMATION
  Report Type: Spontaneous
  Country: CA (occurrence: CA)
  Receive Date: 20130902
  Receipt Date: 20131007
  Transmission Date: 20140711
  Serious: Yes (Other)
  Sender: FDA-Public Use
  Company Number: CA-ROCHE-1267945

PATIENT
  Sex: Female

DRUGS (4)
  1. HERCEPTIN [Suspect]
     Indication: BREAST CANCER METASTATIC
     Dosage: LOADING DOSE
     Route: 042
     Dates: start: 20130418
  2. HERCEPTIN [Suspect]
     Dosage: MAINTAINENCE DOSE
     Route: 042
  3. PACLITAXEL [Suspect]
     Indication: BREAST CANCER METASTATIC
     Route: 042
     Dates: start: 20130419, end: 20130710
  4. EXEMESTANE [Concomitant]
     Indication: BREAST CANCER METASTATIC
     Route: 048

REACTIONS (1)
  - Ulcerative keratitis [Unknown]
